FAERS Safety Report 25564258 (Version 1)
Quarter: 2025Q3

REPORT INFORMATION
  Report Type: Report from Study
  Country: IN (occurrence: IN)
  Receive Date: 20250716
  Receipt Date: 20250716
  Transmission Date: 20251020
  Serious: Yes (Hospitalization)
  Sender: DAIICHI
  Company Number: IN-AstraZeneca-CH-00904761A

PATIENT
  Sex: Male
  Weight: 42 kg

DRUGS (1)
  1. ENHERTU [Suspect]
     Active Substance: FAM-TRASTUZUMAB DERUXTECAN-NXKI
     Indication: Oesophageal carcinoma
     Dosage: 200 MG, Q3W (ONCE EVERY 3 WK)
     Route: 041

REACTIONS (1)
  - Protein total decreased [Unknown]
